FAERS Safety Report 7830786-5 (Version None)
Quarter: 2011Q4

REPORT INFORMATION
  Report Type: 
  Country: None (occurrence: None)
  Receive Date: 20111021
  Receipt Date: 20111013
  Transmission Date: 20120403
  Serious: Yes (Other)
  Sender: FDA-Public Use
  Company Number: US-GLAXOSMITHKLINE-A0944467B

PATIENT

DRUGS (6)
  1. ABILIFY [Concomitant]
     Dosage: 30MG UNKNOWN
     Route: 064
     Dates: start: 20110102, end: 20110913
  2. ACETAMINOPHEN [Concomitant]
     Dosage: 2000MG UNKNOWN
     Route: 064
     Dates: start: 20110919
  3. PHENERGAN HCL [Concomitant]
     Dosage: 25MG AS REQUIRED
     Route: 064
     Dates: start: 20110919
  4. LAMICTAL [Suspect]
     Indication: BIPOLAR DISORDER
     Dosage: 400MG TWICE PER DAY
     Route: 064
     Dates: start: 20110102, end: 20110913
  5. AMOXICILLIN [Concomitant]
     Dosage: 1500MG UNKNOWN
     Route: 064
     Dates: start: 20110919, end: 20110928
  6. FLAGYL [Concomitant]
     Dosage: 1000MG UNKNOWN
     Route: 064
     Dates: start: 20110907, end: 20110913

REACTIONS (2)
  - INTRA-UTERINE DEATH [None]
  - MATERNAL EXPOSURE DURING PREGNANCY [None]
